FAERS Safety Report 6436983-8 (Version None)
Quarter: 2009Q4

REPORT INFORMATION
  Report Type: 
  Country: None (occurrence: None)
  Receive Date: 20091112
  Receipt Date: 20091104
  Transmission Date: 20100525
  Serious: Yes (Hospitalization)
  Sender: FDA-Public Use
  Company Number: US-BIOGENIDEC-2009BI031903

PATIENT
  Sex: Female
  Weight: 73 kg

DRUGS (2)
  1. AVONEX [Suspect]
     Indication: MULTIPLE SCLEROSIS
     Route: 030
     Dates: start: 20050802, end: 20090930
  2. COUMADIN [Concomitant]
     Indication: THROMBOSIS PROPHYLAXIS

REACTIONS (2)
  - ARTHRITIS [None]
  - TRANSFUSION [None]
